FAERS Safety Report 22292416 (Version 1)
Quarter: 2023Q2

REPORT INFORMATION
  Report Type: Report from Study
  Country: IN (occurrence: IN)
  Receive Date: 20230508
  Receipt Date: 20230508
  Transmission Date: 20230722
  Serious: Yes (Death)
  Sender: FDA-Public Use
  Company Number: IN-002147023-NVSC2022IN275478

PATIENT
  Age: 70 Year
  Sex: Male

DRUGS (1)
  1. ELTROMBOPAG OLAMINE [Suspect]
     Active Substance: ELTROMBOPAG OLAMINE
     Indication: Aplastic anaemia
     Dosage: 150 MG, QD
     Route: 048
     Dates: start: 20220902

REACTIONS (5)
  - Death [Fatal]
  - Constipation [Unknown]
  - Hypertension [Unknown]
  - Cholelithiasis [Unknown]
  - Dizziness [Unknown]

NARRATIVE: CASE EVENT DATE: 20220917
